FAERS Safety Report 7983453-1 (Version None)
Quarter: 2011Q4

REPORT INFORMATION
  Report Type: 
  Country: None (occurrence: None)
  Receive Date: 20111215
  Receipt Date: 20111017
  Transmission Date: 20120403
  Serious: No
  Sender: FDA-Public Use
  Company Number: US-BAYER-2011-102277

PATIENT
  Sex: Female

DRUGS (1)
  1. FINACEA [Suspect]
     Route: 061

REACTIONS (4)
  - DRY SKIN [None]
  - ERYTHEMA [None]
  - ACNE [None]
  - PRURITUS [None]
